FAERS Safety Report 8216267-8 (Version None)
Quarter: 2012Q1

REPORT INFORMATION
  Report Type: 
  Country: None (occurrence: None)
  Receive Date: 20120316
  Receipt Date: 20120311
  Transmission Date: 20120608
  Serious: Yes (Other)
  Sender: FDA-Public Use
  Company Number: PHHY2012FR022542

PATIENT
  Sex: Male

DRUGS (2)
  1. STALEVO 100 [Suspect]
  2. SINEMET [Concomitant]

REACTIONS (1)
  - THROMBOCYTOPENIA [None]
